FAERS Safety Report 9179975 (Version 1)
Quarter: 2012Q4

REPORT INFORMATION
  Report Type: 
  Country: NL (occurrence: NL)
  Receive Date: 20121029
  Receipt Date: 20121029
  Transmission Date: 20130627
  Serious: Yes (Death, Hospitalization, Other)
  Sender: FDA-Public Use
  Company Number: PHHY2012NL054645

PATIENT
  Age: 39 None
  Sex: Female

DRUGS (13)
  1. ZOMETA [Suspect]
     Indication: BREAST CANCER METASTATIC
     Dosage: 4 mg/100 ml once in 28 days
  2. ZOMETA [Suspect]
     Dosage: 4 mg/100 ml once in 28 days
     Dates: start: 20110630
  3. ZOMETA [Suspect]
     Dosage: 4 mg/100 ml once in 28 days
     Dates: start: 20120524
  4. ZOMETA [Suspect]
     Dosage: 4 mg/100 ml once in 28 days
     Dates: start: 20120625
  5. ZOMETA [Suspect]
     Dosage: 4 mg/100 ml once in 28 days
     Dates: start: 20120830
  6. ZOMETA [Suspect]
     Dosage: 4 mg/100 ml once in 28 days
     Dates: start: 20120927
  7. MORPHINE [Concomitant]
  8. LYRICA [Concomitant]
     Dosage: 300 mg,
  9. DEXAMETHASONE [Concomitant]
     Dosage: 2 m, BID
  10. PARACETAMOL [Concomitant]
     Dosage: 1000 mg x 3
  11. OXAZEPAM [Concomitant]
     Dosage: 10 mg, x 4
  12. FENTANYL [Concomitant]
     Dosage: 100 ug, X 2-3
  13. PANTOZOL [Concomitant]

REACTIONS (11)
  - Death [Fatal]
  - Pain [Not Recovered/Not Resolved]
  - Neoplasm progression [Not Recovered/Not Resolved]
  - Malignant neoplasm progression [Not Recovered/Not Resolved]
  - Pleural effusion [Not Recovered/Not Resolved]
  - Chest discomfort [Not Recovered/Not Resolved]
  - Restlessness [Not Recovered/Not Resolved]
  - Dyspnoea [Not Recovered/Not Resolved]
  - Hyperphagia [Not Recovered/Not Resolved]
  - Depressed mood [Not Recovered/Not Resolved]
  - Drug ineffective [Not Recovered/Not Resolved]
